FAERS Safety Report 10425226 (Version 1)
Quarter: 2014Q3

REPORT INFORMATION
  Report Type: Spontaneous
  Country: FR (occurrence: FR)
  Receive Date: 20140902
  Receipt Date: 20140902
  Transmission Date: 20150326
  Serious: Yes (Life-Threatening, Other)
  Sender: FDA-Public Use
  Company Number: FR-PFIZER INC-2014239026

PATIENT
  Age: 87 Year
  Sex: Female

DRUGS (7)
  1. DIAMICRON [Suspect]
     Active Substance: GLICLAZIDE
     Dosage: UNK
     Route: 048
     Dates: start: 20110815, end: 20120831
  2. DIAMICRON [Suspect]
     Active Substance: GLICLAZIDE
     Dosage: 30 MG, DAILY
     Route: 048
     Dates: start: 2012, end: 201407
  3. FORLAX [Concomitant]
     Active Substance: POLYETHYLENE GLYCOL 4000
     Dosage: UNK
     Dates: start: 201106, end: 201301
  4. TAHOR [Suspect]
     Active Substance: ATORVASTATIN CALCIUM
     Dosage: UNK
     Route: 048
     Dates: start: 20110712, end: 20140701
  5. ATIVAN [Concomitant]
     Active Substance: LORAZEPAM
     Dosage: UNK
     Dates: start: 201106, end: 201210
  6. SMECTA [Concomitant]
     Active Substance: MONTMORILLONITE
     Dosage: UNK
     Dates: start: 201107, end: 201301
  7. PARACETAMOL [Suspect]
     Active Substance: ACETAMINOPHEN
     Dosage: UNK
     Route: 048
     Dates: start: 20110629, end: 20140701

REACTIONS (2)
  - Hypoglycaemia [Unknown]
  - Dermatitis bullous [Recovered/Resolved]

NARRATIVE: CASE EVENT DATE: 20111230
